FAERS Safety Report 8421381-8 (Version None)
Quarter: 2012Q2

REPORT INFORMATION
  Report Type: 
  Country: None (occurrence: None)
  Receive Date: 20120608
  Receipt Date: 20120605
  Transmission Date: 20120825
  Serious: Yes (Other)
  Sender: FDA-Public Use
  Company Number: PHEH2009US13749

PATIENT
  Sex: Male
  Weight: 98.866 kg

DRUGS (3)
  1. TAXOTERE [Concomitant]
  2. AREDIA [Suspect]
     Dosage: UNK UKN, QMO
     Route: 042
     Dates: start: 20000731
  3. ZOMETA [Suspect]
     Indication: PROSTATE CANCER METASTATIC
     Dosage: UNK UKN, QMO
     Route: 042
     Dates: start: 20010301

REACTIONS (23)
  - SPINAL OSTEOARTHRITIS [None]
  - BONE LESION [None]
  - TOOTH LOSS [None]
  - EXPOSED BONE IN JAW [None]
  - ARTERIOSCLEROSIS CORONARY ARTERY [None]
  - VASCULAR CALCIFICATION [None]
  - METASTASES TO SPINE [None]
  - ANXIETY [None]
  - CATARACT [None]
  - ANHEDONIA [None]
  - PATHOLOGICAL FRACTURE [None]
  - GENERAL PHYSICAL HEALTH DETERIORATION [None]
  - PERIODONTITIS [None]
  - BONE DISORDER [None]
  - OSTEOMYELITIS [None]
  - METASTASES TO BONE [None]
  - MYOPATHY [None]
  - DYSPNOEA [None]
  - RENAL FAILURE CHRONIC [None]
  - OSTEONECROSIS OF JAW [None]
  - PAIN [None]
  - TOOTH ABSCESS [None]
  - PANCYTOPENIA [None]
